FAERS Safety Report 23213488 (Version 1)
Quarter: 2023Q4

REPORT INFORMATION
  Report Type: Spontaneous
  Country: JP (occurrence: JP)
  Receive Date: 20231121
  Receipt Date: 20231121
  Transmission Date: 20240109
  Serious: Yes (Other)
  Sender: FDA-Public Use
  Company Number: JP-TAKEDA-2023TJP009026

PATIENT
  Age: 79 Year
  Sex: Male
  Weight: 80 kg

DRUGS (7)
  1. OPDIVO [Suspect]
     Active Substance: NIVOLUMAB
     Indication: Renal cell carcinoma stage I
     Dosage: UNK
     Dates: start: 20221212
  2. CABOMETYX [Suspect]
     Active Substance: CABOZANTINIB S-MALATE
     Indication: Renal cell carcinoma stage I
     Dosage: 40 MG, QD
     Route: 048
     Dates: start: 20221219, end: 20230115
  3. CABOMETYX [Suspect]
     Active Substance: CABOZANTINIB S-MALATE
     Dosage: 20 MG, QD
     Route: 048
     Dates: start: 20230313, end: 20230327
  4. CARDENALIN [Concomitant]
     Active Substance: DOXAZOSIN MESYLATE
     Indication: Renal cell carcinoma stage I
     Dosage: UNK
     Dates: start: 2023
  5. NIFEDIPINE [Concomitant]
     Active Substance: NIFEDIPINE
     Indication: Renal cell carcinoma stage I
     Dosage: UNK
     Dates: start: 2023
  6. FEBUXOSTAT [Concomitant]
     Active Substance: FEBUXOSTAT
     Indication: Renal cell carcinoma stage I
     Dosage: UNK
     Dates: start: 2023
  7. LAFUTIDINE [Concomitant]
     Active Substance: LAFUTIDINE
     Indication: Renal cell carcinoma stage I
     Dosage: UNK
     Dates: start: 2023

REACTIONS (4)
  - Rash [Recovered/Resolved]
  - Lipase increased [Recovered/Resolved]
  - Haematochezia [Recovered/Resolved]
  - Palmar-plantar erythrodysaesthesia syndrome [Recovered/Resolved]

NARRATIVE: CASE EVENT DATE: 20230108
